FAERS Safety Report 11694301 (Version 1)
Quarter: 2015Q4

REPORT INFORMATION
  Report Type: Spontaneous
  Country: US (occurrence: US)
  Receive Date: 20151103
  Receipt Date: 20151103
  Transmission Date: 20160304
  Serious: Yes (Other)
  Sender: FDA-Public Use
  Company Number: US-BAYER-2015-454685

PATIENT
  Age: 60 Year
  Sex: Male
  Weight: 86.17 kg

DRUGS (5)
  1. COLACE [Concomitant]
     Active Substance: DOCUSATE SODIUM
  2. HYDROCODONE [Concomitant]
     Active Substance: HYDROCODONE
  3. MIRALAX [Suspect]
     Active Substance: POLYETHYLENE GLYCOL 3350
     Indication: CONSTIPATION
     Dosage: 1 DF, PRN
     Route: 048
  4. BAYER LOW DOSE [Suspect]
     Active Substance: ASPIRIN
     Indication: CARDIOVASCULAR DISORDER
     Dosage: 2 DF, TID
     Route: 048
     Dates: start: 201410
  5. BAYER GENUINE ASPIRIN [Suspect]
     Active Substance: ASPIRIN
     Indication: CARDIOVASCULAR DISORDER
     Dosage: 1 DF, QD
     Route: 048

REACTIONS (12)
  - Urinary tract infection [Not Recovered/Not Resolved]
  - Urine odour abnormal [Not Recovered/Not Resolved]
  - Mobility decreased [None]
  - Diarrhoea [Recovered/Resolved]
  - Therapeutic response unexpected [None]
  - Dyspepsia [None]
  - Faecaloma [Not Recovered/Not Resolved]
  - Burning sensation [Not Recovered/Not Resolved]
  - Anorectal discomfort [Not Recovered/Not Resolved]
  - Drug ineffective [None]
  - Product use issue [None]
  - Asthenia [Not Recovered/Not Resolved]
